FAERS Safety Report 5694123-7 (Version None)
Quarter: 2008Q2

REPORT INFORMATION
  Report Type: 
  Country: None (occurrence: None)
  Receive Date: 20080402
  Receipt Date: 20080321
  Transmission Date: 20081010
  Serious: Yes (Other)
  Sender: FDA-Public Use
  Company Number: 2008007140

PATIENT
  Age: 4 Year
  Sex: Female
  Weight: 16.3 kg

DRUGS (1)
  1. CHILDREN'S SUDAFED NASAL DECONGESTANT (PSEUDOEPHEDRINE) [Suspect]
     Indication: NASAL CONGESTION
     Dosage: 1 TEASPOONFUL EVERY 4 HOURS, ORAL
     Route: 048
     Dates: start: 20080316, end: 20080318

REACTIONS (2)
  - DRUG INEFFECTIVE [None]
  - RASH ERYTHEMATOUS [None]
